FAERS Safety Report 8877803 (Version 1)
Quarter: 2012Q4

REPORT INFORMATION
  Report Type: Spontaneous
  Country: GB (occurrence: None)
  Receive Date: 20121026
  Receipt Date: 20121026
  Transmission Date: 20130627
  Serious: Yes (Other)
  Sender: FDA-Public Use
  Company Number: AUR-APL-2012-04551

PATIENT
  Age: 44 Year
  Sex: Female
  Weight: 58.96 kg

DRUGS (9)
  1. BISOPROLOL [Suspect]
     Indication: NON ST SEGMENT ELEVATION MYOCARDIAL INFARCTION
     Route: 048
     Dates: start: 20120829, end: 20121005
  2. BISOPROLOL [Suspect]
     Indication: NON ST SEGMENT ELEVATION MYOCARDIAL INFARCTION
     Route: 048
  3. ASPIRIN [Concomitant]
  4. CLOPIDOGREL (CLOPIDOGREL) [Concomitant]
  5. GAVISCON (GAVISCON) [Concomitant]
  6. GTN (GLYCERYL TRINITRATE) [Concomitant]
  7. LANSOPRAZOLE (LANSOPRAZOLE) [Concomitant]
  8. RANITIDINE (RANITIDINE) [Concomitant]
  9. SIMVASTATIN (SIMVASTATIN) [Concomitant]

REACTIONS (6)
  - Paraesthesia oral [None]
  - Paraesthesia oral [None]
  - Paraesthesia oral [None]
  - Dry mouth [None]
  - Throat tightness [None]
  - Dyspepsia [None]
